FAERS Safety Report 7460134-4 (Version None)
Quarter: 2011Q2

REPORT INFORMATION
  Report Type: 
  Country: None (occurrence: None)
  Receive Date: 20110505
  Receipt Date: 20110425
  Transmission Date: 20111010
  Serious: Yes (Other)
  Sender: FDA-Public Use
  Company Number: US-ELI_LILLY_AND_COMPANY-US201104007069

PATIENT
  Sex: Male
  Weight: 133.79 kg

DRUGS (5)
  1. METFORMIN [Concomitant]
     Indication: TYPE 2 DIABETES MELLITUS
     Dosage: 500 MG, QD
     Route: 048
  2. BYETTA [Suspect]
     Dosage: 10 UG, BID
     Route: 058
  3. BYETTA [Suspect]
     Indication: TYPE 2 DIABETES MELLITUS
     Dosage: 5 UG, BID
     Route: 058
  4. BYETTA [Suspect]
     Dosage: 10 UG, BID
     Route: 058
  5. GLIMEPIRIDE [Concomitant]
     Indication: TYPE 2 DIABETES MELLITUS
     Dosage: 4 MG, BID
     Route: 048

REACTIONS (7)
  - BLOOD GLUCOSE INCREASED [None]
  - DEHYDRATION [None]
  - THIRST [None]
  - POLYURIA [None]
  - DRUG DOSE OMISSION [None]
  - SOMNOLENCE [None]
  - FATIGUE [None]
